FAERS Safety Report 23882279 (Version 1)
Quarter: 2024Q2

REPORT INFORMATION
  Report Type: Spontaneous
  Country: US (occurrence: US)
  Receive Date: 20240522
  Receipt Date: 20240522
  Transmission Date: 20240716
  Serious: Yes (Hospitalization, Other)
  Sender: FDA-Public Use
  Company Number: US-AVET LIFESCIENCES LTD-2024-AVET-000170

PATIENT
  Age: 56 Year
  Sex: Male

DRUGS (2)
  1. ACETAZOLAMIDE [Suspect]
     Active Substance: ACETAZOLAMIDE
     Indication: Hypobarism
     Dosage: 250 MILLIGRAM, BID (ACZ 250 MG TO BE TAKEN TWICE DAILY STARTING 2 DAYS BEFORE HIS HIKE.)
     Route: 065
  2. OLMESARTAN [Concomitant]
     Active Substance: OLMESARTAN
     Dosage: UNK

REACTIONS (4)
  - Exertional rhabdomyolysis [Recovering/Resolving]
  - Dehydration [Recovering/Resolving]
  - Hypovolaemia [Recovering/Resolving]
  - Acute kidney injury [Recovering/Resolving]
